FAERS Safety Report 5748657-7 (Version None)
Quarter: 2008Q2

REPORT INFORMATION
  Report Type: 
  Country: None (occurrence: None)
  Receive Date: 20080521
  Receipt Date: 20080515
  Transmission Date: 20081010
  Serious: Yes (Hospitalization)
  Sender: FDA-Public Use
  Company Number: 2008SP009183

PATIENT
  Age: 83 Year
  Sex: Female
  Weight: 54.4 kg

DRUGS (7)
  1. TEMOZOLOMIDE [Suspect]
     Indication: ACUTE MYELOID LEUKAEMIA
     Dosage: 200 MG/M2; ; PO
     Route: 048
     Dates: start: 20080411, end: 20080417
  2. COUMADIN [Concomitant]
  3. CARDIA [Concomitant]
  4. CARDIZEM [Concomitant]
  5. PROTONIX [Concomitant]
  6. MULTI-VITAMIN [Concomitant]
  7. LUNESTA [Concomitant]

REACTIONS (5)
  - BLOOD ALKALINE PHOSPHATASE INCREASED [None]
  - BLOOD POTASSIUM DECREASED [None]
  - FEBRILE NEUTROPENIA [None]
  - PLEURAL EFFUSION [None]
  - PROTEIN TOTAL DECREASED [None]
